FAERS Safety Report 10465529 (Version 2)
Quarter: 2014Q3

REPORT INFORMATION
  Report Type: Spontaneous
  Country: US (occurrence: US)
  Receive Date: 20140920
  Receipt Date: 20140920
  Transmission Date: 20150326
  Serious: Yes (Death, Other)
  Sender: FDA-Public Use
  Company Number: US-ACCORD-025948

PATIENT
  Age: 52 Year
  Sex: Female

DRUGS (1)
  1. PACLITAXEL/PACLITAXEL LIPOSOME [Suspect]
     Active Substance: PACLITAXEL
     Indication: BREAST CANCER METASTATIC
     Dosage: SINGLE  WEEKLY DOSE

REACTIONS (7)
  - Metabolic encephalopathy [Recovering/Resolving]
  - Cardiopulmonary failure [Fatal]
  - Renal failure acute [Recovering/Resolving]
  - Tumour lysis syndrome [Unknown]
  - Haemodialysis [None]
  - Liver injury [Unknown]
  - Rhabdomyolysis [Recovering/Resolving]
